FAERS Safety Report 17530542 (Version 1)
Quarter: 2020Q1

REPORT INFORMATION
  Report Type: Spontaneous
  Country: US (occurrence: US)
  Receive Date: 20200304
  Receipt Date: 20200304
  Transmission Date: 20200409
  Serious: Yes (Hospitalization)
  Sender: FDA-Public Use
  Company Number: None

PATIENT
  Sex: Female

DRUGS (1)
  1. GLATIRAMER 40MG/ML SYR [Suspect]
     Active Substance: GLATIRAMER
     Route: 058
     Dates: start: 20200210

REACTIONS (3)
  - Injection site reaction [None]
  - Dyspnoea [None]
  - Nausea [None]
